FAERS Safety Report 18715133 (Version 2)
Quarter: 2021Q1

REPORT INFORMATION
  Report Type: Spontaneous
  Country: DE (occurrence: DE)
  Receive Date: 20210107
  Receipt Date: 20210121
  Transmission Date: 20210419
  Serious: Yes (Hospitalization)
  Sender: FDA-Public Use
  Company Number: DE-JNJFOC-20210108730

PATIENT
  Age: 53 Year
  Sex: Male

DRUGS (3)
  1. XARELTO [Suspect]
     Active Substance: RIVAROXABAN
     Route: 048
     Dates: start: 2020
  2. XARELTO [Suspect]
     Active Substance: RIVAROXABAN
     Indication: DEEP VEIN THROMBOSIS
     Dosage: 20 MG, QD
     Route: 048
     Dates: start: 20200511, end: 20200828
  3. XARELTO [Suspect]
     Active Substance: RIVAROXABAN
     Indication: PAIN IN EXTREMITY
     Route: 048
     Dates: start: 20200908

REACTIONS (7)
  - Partial seizures with secondary generalisation [Recovering/Resolving]
  - Fall [Unknown]
  - Back pain [Unknown]
  - Tension headache [Unknown]
  - Traumatic fracture [Unknown]
  - Drug intolerance [Unknown]
  - Off label use [Unknown]

NARRATIVE: CASE EVENT DATE: 2020
